FAERS Safety Report 6673862-5 (Version None)
Quarter: 2010Q2

REPORT INFORMATION
  Report Type: 
  Country: None (occurrence: None)
  Receive Date: 20100409
  Receipt Date: 20100405
  Transmission Date: 20101027
  Serious: Yes (Other)
  Sender: FDA-Public Use
  Company Number: US-SP-2010-01273

PATIENT
  Sex: Female

DRUGS (5)
  1. TUBERSOL [Suspect]
     Indication: TUBERCULIN TEST
     Route: 023
     Dates: start: 20100215, end: 20100215
  2. OMEGA III [Concomitant]
  3. ACIDOPHILUS [Concomitant]
  4. MULTI-VITAMIN [Concomitant]
  5. GRAPE SEED [Concomitant]

REACTIONS (22)
  - APPLICATION SITE HAEMATOMA [None]
  - ARTHRALGIA [None]
  - BALANCE DISORDER [None]
  - CHEST DISCOMFORT [None]
  - COORDINATION ABNORMAL [None]
  - DYSPNOEA [None]
  - DYSURIA [None]
  - EYE DISORDER [None]
  - EYELID DISORDER [None]
  - FEELING ABNORMAL [None]
  - HEADACHE [None]
  - HYPOAESTHESIA [None]
  - HYPOAESTHESIA FACIAL [None]
  - INJECTION SITE HAEMATOMA [None]
  - INJECTION SITE PAPULE [None]
  - LIMB DISCOMFORT [None]
  - MALAISE [None]
  - PARAESTHESIA [None]
  - RASH [None]
  - SENSATION OF HEAVINESS [None]
  - SKIN DISCOLOURATION [None]
  - WHEEZING [None]
